FAERS Safety Report 10310336 (Version 1)
Quarter: 2014Q3

REPORT INFORMATION
  Report Type: Spontaneous
  Country: GR (occurrence: None)
  Receive Date: 20140715
  Receipt Date: 20140715
  Transmission Date: 20150326
  Serious: Yes (Death)
  Sender: FDA-Public Use
  Company Number: NGX_02490_2014

PATIENT
  Sex: Male

DRUGS (1)
  1. QUTENZA [Suspect]
     Active Substance: CAPSAICIN
     Indication: NEUROPATHY PERIPHERAL
     Dosage: 1DF CUTANEOUS PATCH TRANSDERMAL
     Route: 062
     Dates: start: 20140502, end: 20140502

REACTIONS (2)
  - Malignant neoplasm progression [None]
  - Neoplasm malignant [None]

NARRATIVE: CASE EVENT DATE: 201407
